FAERS Safety Report 16664185 (Version 1)
Quarter: 2019Q3

REPORT INFORMATION
  Report Type: Report from Study
  Country: GB (occurrence: GB)
  Receive Date: 20190802
  Receipt Date: 20190802
  Transmission Date: 20191004
  Serious: Yes (Other)
  Sender: FDA-Public Use
  Company Number: PHHY2018GB086142

PATIENT
  Sex: Female

DRUGS (4)
  1. SANDOSTATIN LAR DEPOT [Suspect]
     Active Substance: OCTREOTIDE ACETATE
     Indication: NEUROENDOCRINE TUMOUR
     Dosage: 30 MG, Q4W
     Route: 030
     Dates: start: 201711
  2. FLUCLOXACILLIN [Suspect]
     Active Substance: FLUCLOXACILLIN
     Indication: CANDIDA INFECTION
     Dosage: 500 MG, QD
     Route: 065
  3. FLUCLOXACILLIN [Suspect]
     Active Substance: FLUCLOXACILLIN
     Indication: LICHEN SCLEROSUS
  4. SANDOSTATIN LAR DEPOT [Suspect]
     Active Substance: OCTREOTIDE ACETATE
     Dosage: 30 MG, Q4W
     Route: 030

REACTIONS (23)
  - Cough [Unknown]
  - Cellulitis [Unknown]
  - Infection [Recovered/Resolved]
  - Abdominal pain [Unknown]
  - Dyspnoea [Unknown]
  - Catarrh [Unknown]
  - Lichen sclerosus [Unknown]
  - Vitamin D decreased [Unknown]
  - Fall [Unknown]
  - Candida infection [Unknown]
  - Contusion [Unknown]
  - Seasonal allergy [Unknown]
  - Joint swelling [Not Recovered/Not Resolved]
  - Epistaxis [Unknown]
  - Needle issue [Unknown]
  - Lower respiratory tract infection viral [Unknown]
  - Nasopharyngitis [Unknown]
  - Sciatica [Not Recovered/Not Resolved]
  - Myalgia [Unknown]
  - Back pain [Not Recovered/Not Resolved]
  - Vitamin B complex deficiency [Unknown]
  - Pain in extremity [Unknown]
  - Blood blister [Unknown]
